FAERS Safety Report 4265051-9 (Version None)
Quarter: 2004Q1

REPORT INFORMATION
  Report Type: 
  Country: None (occurrence: None)
  Receive Date: 20040106
  Receipt Date: 20040106
  Transmission Date: 20041129
  Serious: Yes (Life-Threatening)
  Sender: FDA-Public Use
  Company Number: None

PATIENT
  Age: 17 Year
  Sex: Male
  Weight: 113.3993 kg

DRUGS (2)
  1. PAXIL [Suspect]
     Indication: SCHIZOPHRENIA, PARANOID TYPE
     Dosage: QD
     Dates: start: 20030901
  2. ZYPREXA [Suspect]
     Dosage: QD
     Dates: start: 20030901

REACTIONS (2)
  - MALAISE [None]
  - PANCREATITIS [None]
